FAERS Safety Report 5401326-5 (Version None)
Quarter: 2007Q3

REPORT INFORMATION
  Report Type: 
  Country: None (occurrence: None)
  Receive Date: 20070725
  Receipt Date: 20070717
  Transmission Date: 20080115
  Serious: Yes (Hospitalization)
  Sender: FDA-Public Use
  Company Number: 163-21880-07040525

PATIENT
  Age: 69 Year
  Sex: Female

DRUGS (16)
  1. REVLIMID [Suspect]
     Indication: MULTIPLE MYELOMA
     Dosage: 10 MG, QD X21 DAYS, ORAL; 25 MG, 1 IN 1 D, ORAL
     Route: 048
     Dates: start: 20070330, end: 20070407
  2. REVLIMID [Suspect]
     Indication: MULTIPLE MYELOMA
     Dosage: 10 MG, QD X21 DAYS, ORAL; 25 MG, 1 IN 1 D, ORAL
     Route: 048
     Dates: start: 20070512
  3. DEXAMETHASONE TAB [Suspect]
     Indication: MULTIPLE MYELOMA
     Dosage: 40 MG, DAYS 1-4,9-12,17-20
     Dates: start: 20070330, end: 20070407
  4. DEXAMETHASONE TAB [Suspect]
     Indication: MULTIPLE MYELOMA
     Dosage: 40 MG, DAYS 1-4,9-12,17-20
     Dates: start: 20070512
  5. ZOLOFT [Concomitant]
  6. NORVASC [Concomitant]
  7. LASIX [Suspect]
  8. :DURAGESIC(FENTANYL)(POULTICE OR PATCH) [Concomitant]
  9. COREG [Concomitant]
  10. ANAGRELIDE (ANAGRELIDE) [Concomitant]
  11. ASPIRIN [Concomitant]
  12. REGLAN [Concomitant]
  13. PLAVIX [Concomitant]
  14. SYNTHROID [Concomitant]
  15. NEXIUM [Concomitant]
  16. ZOCOR [Concomitant]

REACTIONS (1)
  - RENAL FAILURE ACUTE [None]
